FAERS Safety Report 4775810-1 (Version None)
Quarter: 2005Q3

REPORT INFORMATION
  Report Type: 
  Country: None (occurrence: None)
  Receive Date: 20050922
  Receipt Date: 20050909
  Transmission Date: 20060218
  Serious: Yes (Hospitalization)
  Sender: FDA-Public Use
  Company Number: BE-AMGEN-UK149708

PATIENT
  Sex: Male
  Weight: 89.9 kg

DRUGS (7)
  1. ARANESP [Suspect]
     Indication: ANAEMIA OF MALIGNANT DISEASE
     Route: 030
     Dates: start: 20050801
  2. DEPAKENE [Concomitant]
     Route: 048
  3. MEDROL [Concomitant]
     Route: 048
  4. FLUTICASONE/SALMETEROL [Concomitant]
     Route: 055
  5. SPIRIVA [Concomitant]
     Route: 055
  6. STILNOCT [Concomitant]
     Route: 048
  7. TRAZODONE [Concomitant]
     Route: 048

REACTIONS (3)
  - HEMIPARESIS [None]
  - HYPOTONIA [None]
  - VISUAL DISTURBANCE [None]
